FAERS Safety Report 26022220 (Version 1)
Quarter: 2025Q4

REPORT INFORMATION
  Report Type: Spontaneous
  Country: US (occurrence: US)
  Receive Date: 20251110
  Receipt Date: 20251110
  Transmission Date: 20260117
  Serious: No
  Sender: GALDERMA
  Company Number: US-GALDERMA-US2025020777

PATIENT
  Age: 75 Year
  Sex: Female

DRUGS (1)
  1. NEMLUVIO [Suspect]
     Active Substance: NEMOLIZUMAB-ILTO
     Indication: Dermatitis atopic
     Dosage: 30 MILLIGRAM/ 4 WEEKS
     Route: 058
     Dates: start: 20250928

REACTIONS (3)
  - Rash [Recovering/Resolving]
  - Erythema [Recovering/Resolving]
  - Inflammation [Recovering/Resolving]

NARRATIVE: CASE EVENT DATE: 20251001
